FAERS Safety Report 5922563-7 (Version None)
Quarter: 2008Q4

REPORT INFORMATION
  Report Type: 
  Country: None (occurrence: None)
  Receive Date: 20081017
  Receipt Date: 20081009
  Transmission Date: 20090506
  Serious: Yes (Other)
  Sender: FDA-Public Use
  Company Number: PHHY2008JP21623

PATIENT
  Age: 76 Year
  Sex: Male

DRUGS (3)
  1. DIOVAN [Suspect]
     Indication: HYPERTENSION
     Dosage: 80 MG, QD
  2. ORAL ANTIDIABETICS [Suspect]
  3. EUGLUCON [Concomitant]
     Dosage: UNK
     Dates: start: 20080701

REACTIONS (4)
  - ABNORMAL BEHAVIOUR [None]
  - APATHY [None]
  - LISTLESS [None]
  - PARKINSON'S DISEASE [None]
